FAERS Safety Report 6065031-7 (Version None)
Quarter: 2009Q1

REPORT INFORMATION
  Report Type: 
  Country: None (occurrence: None)
  Receive Date: 20090204
  Receipt Date: 20090128
  Transmission Date: 20090719
  Serious: Yes (Other)
  Sender: FDA-Public Use
  Company Number: GB-ROCHE-607520

PATIENT
  Sex: Female
  Weight: 90.8 kg

DRUGS (8)
  1. ORLISTAT [Suspect]
     Indication: OBESITY
     Route: 048
     Dates: start: 20080421
  2. TRAZODONE HCL [Concomitant]
     Indication: DEPRESSION
     Route: 048
  3. DIAZEPAM [Concomitant]
     Indication: DEPRESSION
     Dosage: DRUG REPORTED AS DIAZEPRAM
     Route: 048
  4. OXAZEPAM [Concomitant]
     Indication: DEPRESSION
     Dosage: DRUG REPORTED AS OXAZEPRAM
     Route: 048
  5. LIOTHYRONINE SODIUM [Concomitant]
     Indication: HYPOTHYROIDISM
     Route: 048
  6. ZAPAIN [Concomitant]
     Indication: ARTHRITIS
     Route: 048
  7. SERTRALINE [Concomitant]
     Indication: DEPRESSION
     Route: 048
     Dates: start: 20080926
  8. TOLTERODINE TARTRATE [Concomitant]
     Route: 048

REACTIONS (7)
  - DRY THROAT [None]
  - DYSGEUSIA [None]
  - INCONTINENCE [None]
  - MASTICATION DISORDER [None]
  - MUSCULAR WEAKNESS [None]
  - PAIN [None]
  - SUICIDAL IDEATION [None]
